APPROVED DRUG PRODUCT: IVERMECTIN
Active Ingredient: IVERMECTIN
Strength: 1%
Dosage Form/Route: CREAM;TOPICAL
Application: A210225 | Product #001 | TE Code: AB
Applicant: PADAGIS ISRAEL PHARMACEUTICALS LTD
Approved: Apr 13, 2020 | RLD: No | RS: No | Type: RX